FAERS Safety Report 9928091 (Version 1)
Quarter: 2014Q1

REPORT INFORMATION
  Report Type: Spontaneous
  Country: GB (occurrence: GB)
  Receive Date: 20140227
  Receipt Date: 20140227
  Transmission Date: 20141002
  Serious: Yes (Death, Other)
  Sender: FDA-Public Use
  Company Number: GB-ROCHE-1355741

PATIENT
  Age: 65 Year
  Sex: Male

DRUGS (8)
  1. RITUXIMAB [Suspect]
     Indication: CASTLEMAN^S DISEASE
     Dosage: 1CYCLICAL
     Route: 065
  2. CISPLATIN [Suspect]
     Indication: CASTLEMAN^S DISEASE
     Dosage: 1CYCLICAL
     Route: 065
  3. CYCLOPHOSPHAMIDE [Suspect]
     Indication: CASTLEMAN^S DISEASE
     Dosage: 1CYCLICAL
     Route: 065
  4. CYTARABINE [Suspect]
     Indication: CASTLEMAN^S DISEASE
     Dosage: 1CYCLICAL
     Route: 065
  5. DEXAMETHASONE [Suspect]
     Indication: CASTLEMAN^S DISEASE
     Dosage: 1CYCLICAL
     Route: 065
  6. DOXORUBICIN HYDROCHLORIDE [Suspect]
     Indication: CASTLEMAN^S DISEASE
     Dosage: 1CYCLICAL
     Route: 042
  7. PREDNISONE [Suspect]
     Indication: CASTLEMAN^S DISEASE
     Dosage: 1CYCLICAL
     Route: 065
  8. VINCRISTINE [Suspect]
     Indication: CASTLEMAN^S DISEASE
     Dosage: 1CYCLICAL
     Route: 065

REACTIONS (2)
  - Castleman^s disease [Fatal]
  - Off label use [Unknown]
